FAERS Safety Report 6369876-5 (Version None)
Quarter: 2009Q3

REPORT INFORMATION
  Report Type: 
  Country: None (occurrence: None)
  Receive Date: 20090923
  Receipt Date: 20070503
  Transmission Date: 20100115
  Serious: No
  Sender: FDA-Public Use
  Company Number: US-ASTRAZENECA-2006UW11485

PATIENT
  Age: 27 Year
  Sex: Female
  Weight: 76.7 kg

DRUGS (15)
  1. SEROQUEL [Suspect]
     Indication: DEPRESSION
     Route: 048
     Dates: start: 20041201
  2. SEROQUEL [Suspect]
     Dosage: 200-300 MG
     Route: 048
     Dates: start: 20050105
  3. ABILIFY [Concomitant]
     Dates: start: 20060201
  4. RISPERDAL [Concomitant]
  5. THORAZINE [Concomitant]
  6. ZOLOFT [Concomitant]
     Dates: start: 20050105
  7. DILANTIN [Concomitant]
     Dates: start: 20050105
  8. ZYRTEC [Concomitant]
     Dates: start: 20050105
  9. DEPAKOTE [Concomitant]
     Dosage: 500-1500 MG
     Dates: start: 20050105
  10. CYMBALTA [Concomitant]
     Dates: start: 20060103
  11. CITALOPRAM HYDROBROMIDE [Concomitant]
     Dates: start: 20060201
  12. TRAZODONE [Concomitant]
     Dosage: 50-150 MG
     Dates: start: 20060201
  13. PREDNISONE TAB [Concomitant]
     Dates: start: 19980717
  14. ATROVENT [Concomitant]
     Dates: start: 19980618
  15. ALBUTEROL [Concomitant]
     Dates: start: 19980601

REACTIONS (2)
  - HYPERGLYCAEMIA [None]
  - SCHIZOPHRENIA [None]
